FAERS Safety Report 5196878-7 (Version None)
Quarter: 2006Q4

REPORT INFORMATION
  Report Type: 
  Country: None (occurrence: None)
  Receive Date: 20061227
  Receipt Date: 20061220
  Transmission Date: 20070319
  Serious: Yes (Hospitalization)
  Sender: FDA-Public Use
  Company Number: FR-GDP-0613964

PATIENT
  Age: 20 Year
  Sex: Female

DRUGS (4)
  1. CUTACNYL [Suspect]
     Indication: ACNE
     Dosage: 1 APP QD TP
     Route: 061
     Dates: start: 20061020, end: 20061107
  2. DIFFERIN [Suspect]
     Indication: ACNE
     Dosage: 1 APP QD TP
     Route: 061
     Dates: start: 20061020, end: 20061107
  3. ERYTHROMYCIN [Suspect]
     Indication: ACNE
     Dosage: 1 APP QD TP
     Route: 061
     Dates: start: 20061020, end: 20061107
  4. NUROFEN [Suspect]
     Indication: DYSMENORRHOEA
     Dosage: 2 DF ONCE PO
     Route: 048
     Dates: start: 20061020, end: 20061030

REACTIONS (2)
  - DYSMENORRHOEA [None]
  - RASH PRURITIC [None]
